FAERS Safety Report 5395634-4 (Version None)
Quarter: 2007Q3

REPORT INFORMATION
  Report Type: 
  Country: None (occurrence: None)
  Receive Date: 20070720
  Receipt Date: 20070717
  Transmission Date: 20080115
  Serious: Yes (Life-Threatening)
  Sender: FDA-Public Use
  Company Number: TCI2006A05546

PATIENT
  Age: 79 Year
  Sex: Male

DRUGS (11)
  1. LEUPROLIDE ACETATE [Suspect]
     Indication: PROSTATE CANCER STAGE IV
     Dosage: 11.25 MG (11.25 MG, 1 IN 12 WK)
     Route: 058
     Dates: start: 20060214, end: 20060214
  2. CASODEC                           (BICALUTAMIDE) (TABLETS) [Concomitant]
  3. ARTIST                       (CARVEDILOL) (TABLETS) [Concomitant]
  4. ALDACTONE [Concomitant]
  5. ACECOL                     (TEMOCAPRIL HYDROCHLORIDE) [Concomitant]
  6. OMEPRAL (OMEPRAZOLE) [Concomitant]
  7. LOSARTAN POTASSIUM [Concomitant]
  8. FERROMIA                          (FERROUS CITRATE) [Concomitant]
  9. PURSENNID            (SENNOSIDE A+B) [Concomitant]
  10. LASIX [Concomitant]
  11. WARFARIN SODIUM [Concomitant]

REACTIONS (11)
  - ANOREXIA [None]
  - CARDIAC FAILURE CONGESTIVE [None]
  - CARDIOMEGALY [None]
  - CONDITION AGGRAVATED [None]
  - DYSPNOEA [None]
  - HAEMODIALYSIS [None]
  - HEART RATE IRREGULAR [None]
  - OEDEMA [None]
  - OXYGEN SATURATION DECREASED [None]
  - PLEURAL EFFUSION [None]
  - RENAL FAILURE ACUTE [None]
